FAERS Safety Report 10457231 (Version 1)
Quarter: 2014Q3

REPORT INFORMATION
  Report Type: Spontaneous
  Country: SE (occurrence: SE)
  Receive Date: 20140916
  Receipt Date: 20140916
  Transmission Date: 20150326
  Serious: Yes (Hospitalization)
  Sender: FDA-Public Use
  Company Number: SE-BAYER-2014-134096

PATIENT
  Age: 65 Year
  Sex: Male

DRUGS (3)
  1. TESTOSTERONE GEL [Suspect]
     Active Substance: TESTOSTERONE
  2. ATACAND [Concomitant]
     Active Substance: CANDESARTAN CILEXETIL
  3. LEVITRA [Suspect]
     Active Substance: VARDENAFIL HYDROCHLORIDE TRIHYDRATE
     Dosage: UNK

REACTIONS (1)
  - Visual field defect [None]

NARRATIVE: CASE EVENT DATE: 2014
